FAERS Safety Report 5829681-2 (Version None)
Quarter: 2008Q3

REPORT INFORMATION
  Report Type: 
  Country: None (occurrence: None)
  Receive Date: 20080731
  Receipt Date: 20080731
  Transmission Date: 20090109
  Serious: Yes (Other)
  Sender: FDA-Public Use
  Company Number: None

PATIENT
  Age: 35 Year
  Sex: Male
  Weight: 97.5234 kg

DRUGS (2)
  1. ZMAX -AZITHROMYCIN EXTENDED REL-2.0 G/60 ML PFIZER [Suspect]
  2. Z-PAK -AZITHROMYCIN- 250 MG TABLETS/ 6 PER BLISTER CARD PFIZER [Suspect]

REACTIONS (2)
  - INTERCEPTED DRUG DISPENSING ERROR [None]
  - MEDICATION ERROR [None]
